FAERS Safety Report 5869475-5 (Version None)
Quarter: 2008Q3

REPORT INFORMATION
  Report Type: 
  Country: None (occurrence: None)
  Receive Date: 20080828
  Receipt Date: 20080825
  Transmission Date: 20090109
  Serious: Yes (Hospitalization)
  Sender: FDA-Public Use
  Company Number: 2008BI014552

PATIENT
  Age: 42 Year
  Sex: Female

DRUGS (1)
  1. TYSABRI [Suspect]
     Indication: RELAPSING-REMITTING MULTIPLE SCLEROSIS
     Dosage: ; QM; IV
     Route: 042
     Dates: start: 20080226, end: 20080522

REACTIONS (10)
  - ABDOMINAL PAIN UPPER [None]
  - ASTHENIA [None]
  - BLADDER DISORDER [None]
  - CHLAMYDIA IDENTIFICATION TEST POSITIVE [None]
  - DIARRHOEA [None]
  - NODULE [None]
  - PARAESTHESIA [None]
  - PLEURAL EFFUSION [None]
  - PLEURISY [None]
  - SINUSITIS [None]
